FAERS Safety Report 16308086 (Version 3)
Quarter: 2019Q2

REPORT INFORMATION
  Report Type: Report from Study
  Country: None (occurrence: CA)
  Receive Date: 20190514
  Receipt Date: 20190619
  Transmission Date: 20190711
  Serious: Yes (Hospitalization, Other)
  Sender: FDA-Public Use
  Company Number: CA-ABBVIE-19K-028-2779139-00

PATIENT
  Age: 60 Year
  Sex: Male

DRUGS (2)
  1. HUMIRA [Suspect]
     Active Substance: ADALIMUMAB
     Route: 058
     Dates: start: 2019
  2. HUMIRA [Suspect]
     Active Substance: ADALIMUMAB
     Indication: ANKYLOSING SPONDYLITIS
     Route: 058
     Dates: start: 20190205, end: 20190425

REACTIONS (10)
  - Blood glucose increased [Unknown]
  - Loss of consciousness [Unknown]
  - Fall [Recovered/Resolved]
  - Somnolence [Unknown]
  - Seizure [Unknown]
  - Influenza [Unknown]
  - Cerebrovascular accident [Unknown]
  - Unresponsive to stimuli [Recovered/Resolved]
  - Coronary arterial stent insertion [Unknown]
  - Complication associated with device [Unknown]

NARRATIVE: CASE EVENT DATE: 2019
